FAERS Safety Report 15182928 (Version 3)
Quarter: 2018Q4

REPORT INFORMATION
  Report Type: Spontaneous
  Country: JP (occurrence: JP)
  Receive Date: 20180723
  Receipt Date: 20181010
  Transmission Date: 20190204
  Serious: Yes (Hospitalization)
  Sender: FDA-Public Use
  Company Number: JP-ALLERGAN-1836111US

PATIENT
  Age: 57 Year
  Sex: Male

DRUGS (1)
  1. BOTOX [Suspect]
     Active Substance: ONABOTULINUMTOXINA
     Indication: MUSCLE SPASTICITY
     Dosage: 240 UNITS, SINGLE
     Route: 030
     Dates: start: 20180625, end: 20180625

REACTIONS (4)
  - Fall [Recovering/Resolving]
  - Posture abnormal [Unknown]
  - Balance disorder [Recovering/Resolving]
  - Radius fracture [Unknown]
